FAERS Safety Report 9268022 (Version 1)
Quarter: 2013Q2

REPORT INFORMATION
  Report Type: Spontaneous
  Country: US (occurrence: US)
  Receive Date: 20130502
  Receipt Date: 20130502
  Transmission Date: 20140414
  Serious: Yes (Hospitalization)
  Sender: FDA-Public Use
  Company Number: US-ALEXION-A201201742

PATIENT
  Age: 51 Year
  Sex: Female
  Weight: 104.3 kg

DRUGS (6)
  1. SOLIRIS 300MG [Suspect]
     Indication: PAROXYSMAL NOCTURNAL HAEMOGLOBINURIA
     Dosage: 900 MG, Q2W
     Route: 042
     Dates: start: 201012, end: 201101
  2. SOLIRIS 300MG [Suspect]
     Dosage: 1200 MG, Q2W
     Route: 042
     Dates: start: 201101, end: 20120828
  3. SOLIRIS 300MG [Suspect]
     Dosage: 1200 MG Q12D
     Route: 042
     Dates: start: 20120921
  4. DANAZOL [Concomitant]
     Dosage: UNK
  5. FOLIC ACID [Concomitant]
     Dosage: UNK
  6. TOPIRAMATE [Concomitant]
     Indication: IRON DEFICIENCY
     Dosage: UNK

REACTIONS (2)
  - Haemoglobin decreased [Unknown]
  - Chromaturia [Recovering/Resolving]
